FAERS Safety Report 9377009 (Version 3)
Quarter: 2013Q3

REPORT INFORMATION
  Report Type: Report from Study
  Country: US (occurrence: US)
  Receive Date: 20130701
  Receipt Date: 20130930
  Transmission Date: 20140515
  Serious: Yes (Death, Hospitalization, Other)
  Sender: FDA-Public Use
  Company Number: US-ALEXION PHARMACEUTICALS INC.-A201301458

PATIENT
  Age: 66 Year
  Sex: Female
  Weight: 81.6 kg

DRUGS (1)
  1. SOLIRIS [Suspect]
     Indication: HAEMOLYTIC URAEMIC SYNDROME
     Dosage: 900 MG, QW
     Route: 042
     Dates: start: 20130524, end: 20130612

REACTIONS (15)
  - Multi-organ failure [Fatal]
  - Graft versus host disease [Fatal]
  - Sepsis [Fatal]
  - Immunosuppression [Unknown]
  - Renal failure [Unknown]
  - Malnutrition [Unknown]
  - Hyperbilirubinaemia [Unknown]
  - Fungaemia [Unknown]
  - Cytomegalovirus viraemia [Unknown]
  - Acute respiratory failure [Unknown]
  - Mental status changes [Unknown]
  - Acute hepatic failure [Unknown]
  - Thrombotic microangiopathy [Unknown]
  - Somnolence [Unknown]
  - Blood lactate dehydrogenase increased [Unknown]
